FAERS Safety Report 10003959 (Version 1)
Quarter: 2014Q1

REPORT INFORMATION
  Report Type: Spontaneous
  Country: US (occurrence: US)
  Receive Date: 20140312
  Receipt Date: 20140312
  Transmission Date: 20141002
  Serious: No
  Sender: FDA-Public Use
  Company Number: US-INCYTE CORPORATION-2014IN000197

PATIENT
  Sex: Male

DRUGS (11)
  1. JAKAFI [Suspect]
     Indication: MYELOFIBROSIS
     Dosage: 5 MG, BID
     Route: 048
     Dates: start: 201302
  2. JAKAFI [Suspect]
     Dosage: 15 MG, BID
     Route: 048
  3. FINASTERIDE [Concomitant]
  4. TERAZOSIN [Concomitant]
  5. LOSARTAN [Concomitant]
  6. SILDENAFIL [Concomitant]
  7. FUROSEMIDE [Concomitant]
  8. HYDRALAZINE [Concomitant]
  9. METFORMIN [Concomitant]
  10. WARFARIN [Concomitant]
  11. SPIRONOLACTONE [Concomitant]

REACTIONS (3)
  - Splenomegaly [Unknown]
  - Dyspnoea [Unknown]
  - Insomnia [Unknown]
